FAERS Safety Report 10608927 (Version 3)
Quarter: 2015Q4

REPORT INFORMATION
  Report Type: Spontaneous
  Country: JP (occurrence: JP)
  Receive Date: 20141125
  Receipt Date: 20151203
  Transmission Date: 20160304
  Serious: Yes (Death)
  Sender: FDA-Public Use
  Company Number: JP-CELGENE-087-50794-13113253

PATIENT

DRUGS (4)
  1. VIDAZA [Suspect]
     Active Substance: AZACITIDINE
     Indication: MYELODYSPLASTIC SYNDROME
     Dosage: 75 MILLIGRAM/SQ. METER
     Route: 041
     Dates: start: 201103, end: 201407
  2. ARAC [Suspect]
     Active Substance: CYTARABINE
     Indication: MYELODYSPLASTIC SYNDROME
     Dosage: 20 MILLIGRAM/SQ. METER
     Route: 058
     Dates: start: 201103, end: 201407
  3. ACLACINON [Suspect]
     Active Substance: ACLARUBICIN HYDROCHLORIDE
     Route: 041
  4. ACLACINON [Suspect]
     Active Substance: ACLARUBICIN HYDROCHLORIDE
     Indication: MYELODYSPLASTIC SYNDROME
     Route: 041
     Dates: start: 201103, end: 201407

REACTIONS (2)
  - Myelodysplastic syndrome [Fatal]
  - Treatment failure [Fatal]
